FAERS Safety Report 8490902-1 (Version None)
Quarter: 2012Q2

REPORT INFORMATION
  Report Type: 
  Country: None (occurrence: None)
  Receive Date: 20120629
  Receipt Date: 20120629
  Transmission Date: 20120825
  Serious: Yes (Other)
  Sender: FDA-Public Use
  Company Number: None

PATIENT
  Age: 58 Year
  Sex: Male
  Weight: 75 kg

DRUGS (4)
  1. ALLOPURINOL [Suspect]
     Indication: TUMOUR LYSIS SYNDROME
     Dosage: 300MG QD PO
     Route: 048
     Dates: start: 20120621, end: 20120623
  2. ALLOPURINOL [Suspect]
     Indication: PROPHYLAXIS
     Dosage: 300MG QD PO
     Route: 048
     Dates: start: 20120621, end: 20120623
  3. CEFEPIME [Suspect]
     Indication: EVIDENCE BASED TREATMENT
     Dosage: 2G  Q8H IV
     Route: 042
     Dates: start: 20120621, end: 20120622
  4. CEFEPIME [Suspect]
     Indication: INFECTION
     Dosage: 2G  Q8H IV
     Route: 042
     Dates: start: 20120621, end: 20120622

REACTIONS (2)
  - SKIN LESION [None]
  - RASH MACULO-PAPULAR [None]
